FAERS Safety Report 11506289 (Version 1)
Quarter: 2015Q3

REPORT INFORMATION
  Report Type: Spontaneous
  Country: SE (occurrence: SE)
  Receive Date: 20150915
  Receipt Date: 20150915
  Transmission Date: 20151125
  Serious: Yes (Hospitalization)
  Sender: FDA-Public Use
  Company Number: SE-TEVA-557234ISR

PATIENT
  Sex: Male

DRUGS (1)
  1. ALFUZOSIN PER ORAL [Suspect]
     Active Substance: ALFUZOSIN
     Route: 048

REACTIONS (1)
  - Paraesthesia [Recovered/Resolved]
